FAERS Safety Report 24554642 (Version 2)
Quarter: 2024Q4

REPORT INFORMATION
  Report Type: Spontaneous
  Country: QA (occurrence: QA)
  Receive Date: 20241028
  Receipt Date: 20241114
  Transmission Date: 20250114
  Serious: Yes (Hospitalization)
  Sender: STRIDES
  Company Number: QA-STRIDES ARCOLAB LIMITED-2024SP013706

PATIENT
  Age: 66 Year
  Sex: Female
  Weight: 70 kg

DRUGS (1)
  1. METHOTREXATE [Suspect]
     Active Substance: METHOTREXATE
     Indication: Product used for unknown indication
     Dosage: 10 MILLIGRAM, QD (DAILY), (DOSE PRESCRIBED WAS 12.5 MG ONCE WEEKLY, BUT THE PATIENT TOOK 10 MG ONCE
     Route: 048

REACTIONS (10)
  - Joint swelling [Not Recovered/Not Resolved]
  - Accidental overdose [Unknown]
  - Oropharyngeal pain [Not Recovered/Not Resolved]
  - Mouth ulceration [Recovered/Resolved]
  - Arthralgia [Not Recovered/Not Resolved]
  - Nausea [Unknown]
  - Vomiting [Unknown]
  - Abdominal pain [Recovered/Resolved]
  - Diarrhoea [Recovered/Resolved]
  - Toxicity to various agents [Not Recovered/Not Resolved]
